FAERS Safety Report 9355614 (Version 2)
Quarter: 2013Q3

REPORT INFORMATION
  Report Type: Report from Study
  Country: PL (occurrence: PL)
  Receive Date: 20130619
  Receipt Date: 20130715
  Transmission Date: 20140515
  Serious: Yes (Hospitalization, Other)
  Sender: FDA-Public Use
  Company Number: PL-ASTELLAS-2013US006270

PATIENT
  Age: 74 Year
  Sex: Female

DRUGS (10)
  1. ERLOTINIB TABLET [Suspect]
     Indication: NON-SMALL CELL LUNG CANCER
     Dosage: 150 MG, UID/QD
     Route: 065
     Dates: start: 20130130, end: 201304
  2. ERLOTINIB TABLET [Suspect]
     Dosage: 100 MG, UID/QD
     Route: 065
     Dates: start: 20090413, end: 20120313
  3. ERLOTINIB TABLET [Suspect]
     Dosage: UNK MG, UNKNOWN/D
     Route: 065
     Dates: start: 201111, end: 201209
  4. CISPLATIN [Concomitant]
     Indication: PRODUCT USED FOR UNKNOWN INDICATION
     Dosage: UNK
     Route: 065
     Dates: start: 201108, end: 201110
  5. CONCOR COR [Concomitant]
     Indication: HYPERTENSION
     Dosage: UNK
     Route: 048
  6. FUROSEMIDE [Concomitant]
     Indication: HYPERTENSION
     Dosage: UNK
     Route: 048
  7. NOLPAZA [Concomitant]
     Indication: GASTRITIS
     Dosage: 20 MG, UNKNOWN/D
     Route: 048
  8. ATORVASTATIN CALCIUM [Concomitant]
     Indication: HYPERCHOLESTEROLAEMIA
     Dosage: 20 MG, UID/QD
     Route: 048
  9. ASPIRIN [Concomitant]
     Indication: PRODUCT USED FOR UNKNOWN INDICATION
     Dosage: UNK
     Route: 065
  10. VINORELBINE [Concomitant]
     Indication: PRODUCT USED FOR UNKNOWN INDICATION
     Dosage: UNK
     Route: 065
     Dates: start: 201108, end: 201110

REACTIONS (12)
  - Pleural effusion [Recovered/Resolved]
  - Myocardial infarction [Recovered/Resolved]
  - Blood bilirubin increased [Recovered/Resolved]
  - Aspartate aminotransferase increased [Recovered/Resolved]
  - Alanine aminotransferase increased [Recovered/Resolved]
  - Malignant neoplasm progression [Unknown]
  - Chest pain [Unknown]
  - Rash [Recovered/Resolved]
  - Diarrhoea [Unknown]
  - Dermatitis [Unknown]
  - Weight decreased [Unknown]
  - Cough [Unknown]
